FAERS Safety Report 18930510 (Version 2)
Quarter: 2021Q1

REPORT INFORMATION
  Report Type: Spontaneous
  Country: FR (occurrence: FR)
  Receive Date: 20210223
  Receipt Date: 20210304
  Transmission Date: 20210420
  Serious: Yes (Life-Threatening, Hospitalization, Other)
  Sender: FDA-Public Use
  Company Number: NVSC2021FR042165

PATIENT
  Sex: Male
  Weight: 100 kg

DRUGS (16)
  1. ACITRETINE [Suspect]
     Active Substance: ACITRETIN
     Indication: PSORIASIS
     Dosage: UNK
     Route: 065
  2. TALTZ [Concomitant]
     Active Substance: IXEKIZUMAB
     Indication: PRODUCT USED FOR UNKNOWN INDICATION
     Dosage: 160 MG, BIW
     Route: 058
     Dates: start: 20190408
  3. METHOTREXATE. [Suspect]
     Active Substance: METHOTREXATE
     Dosage: 15MG (15 MG, Q WEEK)
     Route: 048
     Dates: start: 2013
  4. STELARA [Suspect]
     Active Substance: USTEKINUMAB
     Dosage: 45 MG (45 MG ONCE EVERY 12 WEEKS)
     Route: 058
     Dates: start: 20170226
  5. DAIVOBET [Suspect]
     Active Substance: BETAMETHASONE DIPROPIONATE\CALCIPOTRIENE
     Indication: PSORIASIS
     Dosage: UNK
     Route: 065
     Dates: start: 20161219
  6. METHOTREXATE. [Suspect]
     Active Substance: METHOTREXATE
     Indication: PSORIASIS
     Dosage: 15 MG, QW
     Route: 048
     Dates: start: 2013
  7. HUMIRA [Suspect]
     Active Substance: ADALIMUMAB
     Indication: PSORIASIS
     Dosage: 80 MG, QW
     Route: 058
     Dates: start: 20130531
  8. CLARELUX [Suspect]
     Active Substance: CLOBETASOL PROPIONATE
     Dosage: UNK
     Route: 065
     Dates: start: 20161219
  9. STELARA [Suspect]
     Active Substance: USTEKINUMAB
     Indication: PSORIASIS
     Dosage: 45 MG(45 MG ONCE EVERY 14 WEEKS)
     Route: 048
     Dates: start: 20180110
  10. CLARELUX [Suspect]
     Active Substance: CLOBETASOL PROPIONATE
     Indication: PSORIASIS
     Dosage: UNK
     Route: 065
     Dates: start: 20180108
  11. STELARA [Suspect]
     Active Substance: USTEKINUMAB
     Dosage: 45 MG (45 MG ONCE EVERY 4 WEEKS )
     Route: 058
     Dates: start: 20170126
  12. SEBIPROX [Suspect]
     Active Substance: CICLOPIROX OLAMINE
     Dosage: UNK
     Route: 065
     Dates: start: 20180108
  13. DAIVOBET [Suspect]
     Active Substance: BETAMETHASONE DIPROPIONATE\CALCIPOTRIENE
     Dosage: UNK
     Route: 065
     Dates: start: 20190408
  14. HUMIRA [Suspect]
     Active Substance: ADALIMUMAB
     Dosage: 40 MG, BIW (ONCE AT 2 WEEKS )
     Route: 058
     Dates: start: 20130630
  15. SEBIPROX [Suspect]
     Active Substance: CICLOPIROX OLAMINE
     Indication: PSORIASIS
     Dosage: UNK
     Route: 065
     Dates: start: 20161219
  16. DEXERYL (CHLORPHENAMINE MALEATE/DEXTROMETHORPHAN HYDROBROMIDE/GUAIFENESIN/PHENYLEPHRINE HYDROCHLORIDE) [Suspect]
     Active Substance: CHLORPHENIRAMINE MALEATE\DEXTROMETHORPHAN HYDROBROMIDE\GUAIFENESIN\PHENYLEPHRINE HYDROCHLORIDE
     Indication: PSORIASIS
     Dosage: UNK
     Route: 065
     Dates: start: 20161219

REACTIONS (2)
  - Type 2 diabetes mellitus [Recovering/Resolving]
  - Myocardial infarction [Recovered/Resolved]

NARRATIVE: CASE EVENT DATE: 2018
